FAERS Safety Report 12236575 (Version 2)
Quarter: 2016Q2

REPORT INFORMATION
  Report Type: Spontaneous
  Country: US (occurrence: US)
  Receive Date: 20160405
  Receipt Date: 20160603
  Transmission Date: 20160815
  Serious: Yes (Other)
  Sender: FDA-Public Use
  Company Number: US-ASTRAZENECA-2016SE34343

PATIENT
  Age: 991 Month
  Sex: Male
  Weight: 104.3 kg

DRUGS (12)
  1. MOVANTIK [Suspect]
     Active Substance: NALOXEGOL OXALATE
     Indication: CONSTIPATION
     Route: 048
     Dates: start: 20160323
  2. NORCO [Concomitant]
     Active Substance: ACETAMINOPHEN\HYDROCODONE BITARTRATE
     Dosage: 10/325 MG
     Route: 048
  3. ATENOLOL. [Suspect]
     Active Substance: ATENOLOL
     Route: 048
  4. HYDROCHLOROTHIAZIDE. [Concomitant]
     Active Substance: HYDROCHLOROTHIAZIDE
     Indication: DIURETIC THERAPY
     Route: 048
  5. VITAMIN [Concomitant]
     Active Substance: VITAMINS
     Indication: PRODUCT USED FOR UNKNOWN INDICATION
     Route: 048
  6. LEVOTHYROXINE. [Concomitant]
     Active Substance: LEVOTHYROXINE
     Indication: THYROID DISORDER
     Route: 048
  7. OMEGA 3 ETHYESTE [Concomitant]
     Indication: BLOOD TRIGLYCERIDES
     Route: 048
     Dates: start: 2015
  8. CANDESARTAN [Suspect]
     Active Substance: CANDESARTAN
     Indication: BLOOD PRESSURE ABNORMAL
     Route: 048
  9. MOVANTIK [Suspect]
     Active Substance: NALOXEGOL OXALATE
     Indication: CONSTIPATION
     Dosage: HALF A DOSE OF MOVANTIK
     Route: 048
     Dates: start: 20160324
  10. CRESTOR [Suspect]
     Active Substance: ROSUVASTATIN CALCIUM
     Indication: BLOOD CHOLESTEROL ABNORMAL
     Route: 048
  11. LANSOPRAZOLE. [Concomitant]
     Active Substance: LANSOPRAZOLE
     Indication: GASTROOESOPHAGEAL REFLUX DISEASE
     Route: 048
  12. KADIAN [Concomitant]
     Active Substance: MORPHINE SULFATE
     Indication: SPINAL PAIN
     Route: 048
     Dates: start: 2006

REACTIONS (5)
  - Presyncope [Recovered/Resolved]
  - Infrequent bowel movements [Unknown]
  - Somnolence [Unknown]
  - Intentional product misuse [Unknown]
  - Hypotension [Unknown]

NARRATIVE: CASE EVENT DATE: 201601
